FAERS Safety Report 8842244 (Version 1)
Quarter: 2012Q4

REPORT INFORMATION
  Report Type: Spontaneous
  Country: US (occurrence: None)
  Receive Date: 20121015
  Receipt Date: 20121015
  Transmission Date: 20130627
  Serious: Yes (Death)
  Sender: FDA-Public Use
  Company Number: None

PATIENT
  Age: 71 Year
  Sex: Female
  Weight: 54.43 kg

DRUGS (1)
  1. DURAGESIC [Suspect]
     Indication: POST PROCEDURAL PAIN
     Dosage: 50 mcg/HR, every 72 hrs, transdermal
     Route: 062
     Dates: start: 20120726, end: 20120726

REACTIONS (1)
  - Death [None]
